FAERS Safety Report 15525396 (Version 1)
Quarter: 2018Q4

REPORT INFORMATION
  Report Type: Spontaneous
  Country: FR (occurrence: FR)
  Receive Date: 20181019
  Receipt Date: 20181019
  Transmission Date: 20190205
  Serious: Yes (Hospitalization)
  Sender: FDA-Public Use
  Company Number: FR-TEVA-2018-FR-966223

PATIENT
  Age: 82 Year
  Sex: Female
  Weight: 57 kg

DRUGS (10)
  1. PROPRANOLOL [Concomitant]
     Active Substance: PROPRANOLOL HYDROCHLORIDE
     Dosage: 40 MILLIGRAM DAILY;
     Route: 048
  2. FRACTAL L.P. 80 MG, COMPRIM? PELLICUL? ? LIB?RATION PROLONG?E [Concomitant]
     Dosage: 1 DOSAGE FORMS DAILY;
     Route: 048
  3. TRAMADOL BASE [Suspect]
     Active Substance: TRAMADOL
     Indication: POST HERPETIC NEURALGIA
     Dosage: 100 MILLIGRAM DAILY;
     Route: 048
     Dates: start: 20180112, end: 20180210
  4. IZALGI 500 MG/25 MG, G?LULE [Suspect]
     Active Substance: ACETAMINOPHEN\OPIUM
     Indication: POST HERPETIC NEURALGIA
     Dosage: 3 DOSAGE FORMS DAILY;
     Route: 048
     Dates: start: 20180206, end: 20180210
  5. PARACETAMOL [Concomitant]
     Active Substance: ACETAMINOPHEN
     Route: 048
  6. TRAMADOL BASE [Concomitant]
     Active Substance: TRAMADOL
     Dosage: 100 MILLIGRAM DAILY;
     Route: 048
     Dates: end: 20180112
  7. ZELITREX 500 MG, COMPRIM? ENROB? [Concomitant]
     Active Substance: VALACYCLOVIR HYDROCHLORIDE
     Route: 048
     Dates: start: 20180112, end: 20180119
  8. SIFROL 0,18 MG, COMPRIM? [Concomitant]
     Dosage: 2 DOSAGE FORMS DAILY;
     Route: 048
     Dates: start: 20180116
  9. SIBELIUM 10 MG, COMPRIM? S?CABLE [Concomitant]
     Route: 048
     Dates: end: 20180116
  10. SIFROL 0,18 MG, COMPRIM? [Concomitant]
     Dosage: 1 DOSAGE FORMS DAILY;
     Route: 048
     Dates: start: 201712, end: 20180116

REACTIONS (2)
  - Confusional state [Recovered/Resolved]
  - General physical health deterioration [Recovered/Resolved]

NARRATIVE: CASE EVENT DATE: 20180210
